FAERS Safety Report 5765768-0 (Version None)
Quarter: 2008Q2

REPORT INFORMATION
  Report Type: 
  Country: None (occurrence: None)
  Receive Date: 20080604
  Receipt Date: 20080114
  Transmission Date: 20081010
  Serious: Yes (Other)
  Sender: FDA-Public Use
  Company Number: 2008005684

PATIENT
  Sex: Female
  Weight: 43.18 kg

DRUGS (1)
  1. LITHIUM CARBONATE [Suspect]

REACTIONS (2)
  - OVERDOSE [None]
  - THYROID DISORDER [None]
